FAERS Safety Report 17924254 (Version 1)
Quarter: 2020Q2

REPORT INFORMATION
  Report Type: Report from Study
  Country: ES (occurrence: ES)
  Receive Date: 20200622
  Receipt Date: 20200622
  Transmission Date: 20200714
  Serious: Yes (Death, Other)
  Sender: FDA-Public Use
  Company Number: ES-TEVA-2020-ES-1788903

PATIENT
  Age: 59 Year
  Sex: Male
  Weight: 77 kg

DRUGS (5)
  1. AZITROMICINA (7019A) [Interacting]
     Active Substance: AZITHROMYCIN
     Indication: COVID-19
     Dosage: 500 MG
     Route: 048
     Dates: start: 20200326, end: 20200327
  2. TOCILIZUMAB (8289A) [Concomitant]
     Active Substance: TOCILIZUMAB
     Indication: COVID-19
     Dosage: 800 MG
     Route: 042
     Dates: start: 20200327, end: 20200327
  3. LOPINAVIR+RITONAVIR [Suspect]
     Active Substance: LOPINAVIR\RITONAVIR
     Indication: COVID-19
     Route: 048
     Dates: start: 20200326, end: 20200327
  4. CEFTRIAXONA (501A) [Concomitant]
     Active Substance: CEFTRIAXONE
     Indication: COVID-19
     Dosage: 1 GRAM
     Route: 042
     Dates: start: 20200326, end: 20200327
  5. HIDROXICLOROQUINA SULFATO (2143SU) [Suspect]
     Active Substance: HYDROXYCHLOROQUINE SULFATE
     Indication: COVID-19
     Dosage: 400 MG
     Route: 048
     Dates: start: 20200327, end: 20200331

REACTIONS (2)
  - Long QT syndrome [Recovered/Resolved]
  - Drug interaction [Unknown]

NARRATIVE: CASE EVENT DATE: 20200327
